FAERS Safety Report 12548664 (Version 1)
Quarter: 2016Q3

REPORT INFORMATION
  Report Type: Spontaneous
  Country: US (occurrence: None)
  Receive Date: 20160711
  Receipt Date: 20160711
  Transmission Date: 20161109
  Serious: Yes (Other)
  Sender: FDA-Public Use
  Company Number: None

PATIENT
  Age: 48 Year
  Sex: Male
  Weight: 80.74 kg

DRUGS (2)
  1. AMOX TR-K CLV 875-125 TAB, 875 MG SANDOZ [Suspect]
     Active Substance: AMOXICILLIN\CLAVULANATE POTASSIUM
     Indication: COUGH
     Dosage: 20 TABLET(S) TWICE A DAY TAKEN BY MOUTH
     Route: 048
     Dates: start: 20160609, end: 20160616
  2. ATORIVASTIN [Concomitant]

REACTIONS (3)
  - Diarrhoea [None]
  - Gastrointestinal pain [None]
  - Hyperpyrexia [None]

NARRATIVE: CASE EVENT DATE: 20160620
